FAERS Safety Report 25422126 (Version 2)
Quarter: 2025Q3

REPORT INFORMATION
  Report Type: Spontaneous
  Country: SG (occurrence: SG)
  Receive Date: 20250611
  Receipt Date: 20250808
  Transmission Date: 20251020
  Serious: Yes (Disabling)
  Sender: ABBVIE
  Company Number: SG-LUNDBECK-DKLU4015289

PATIENT
  Age: 41 Year
  Sex: Male

DRUGS (3)
  1. LEXAPRO [Suspect]
     Active Substance: ESCITALOPRAM OXALATE
     Indication: Depression
     Route: 065
  2. FLECAINIDE ACETATE [Concomitant]
     Active Substance: FLECAINIDE ACETATE
     Indication: Arrhythmia
     Dosage: FORM STRENGTH: 100 MILLIGRAM,?50 MILLIGRAM
     Route: 065
  3. FENOFIBRATE [Concomitant]
     Active Substance: FENOFIBRATE
     Indication: Blood cholesterol increased

REACTIONS (3)
  - Withdrawal syndrome [Recovered/Resolved]
  - Blood cholesterol increased [Unknown]
  - Hypometabolism [Unknown]
